FAERS Safety Report 12782880 (Version 1)
Quarter: 2016Q3

REPORT INFORMATION
  Report Type: Spontaneous
  Country: US (occurrence: US)
  Receive Date: 20160927
  Receipt Date: 20160927
  Transmission Date: 20161109
  Serious: No
  Sender: FDA-Public Use
  Company Number: US-PFIZER INC-2016429672

PATIENT
  Sex: Female

DRUGS (1)
  1. AMLODIPINE BESILATE [Suspect]
     Active Substance: AMLODIPINE BESYLATE
     Dosage: UNK

REACTIONS (6)
  - Nausea [Unknown]
  - Gait disturbance [Unknown]
  - Somnolence [Unknown]
  - Dizziness [Unknown]
  - Activities of daily living impaired [Unknown]
  - Balance disorder [Unknown]
